FAERS Safety Report 22085087 (Version 1)
Quarter: 2023Q1

REPORT INFORMATION
  Report Type: Spontaneous
  Country: FR (occurrence: FR)
  Receive Date: 20230310
  Receipt Date: 20230310
  Transmission Date: 20230418
  Serious: Yes (Other)
  Sender: FDA-Public Use
  Company Number: None

PATIENT
  Age: 64 Year
  Sex: Female

DRUGS (2)
  1. CLINDAMYCIN [Suspect]
     Active Substance: CLINDAMYCIN
     Indication: Erysipelas
     Dosage: 600 MILLIGRAM, Q6H, EVERY 6 HOURS
     Route: 048
     Dates: start: 20230129, end: 20230202
  2. AUGMENTIN [Suspect]
     Active Substance: AMOXICILLIN\CLAVULANATE POTASSIUM
     Indication: Erysipelas
     Dosage: 1 GRAM, Q6H, 1 G EVERY 6 HOURS
     Route: 048
     Dates: start: 20230201, end: 20230202

REACTIONS (1)
  - Hepatic cytolysis [Recovering/Resolving]

NARRATIVE: CASE EVENT DATE: 20230202
